FAERS Safety Report 25124988 (Version 2)
Quarter: 2025Q2

REPORT INFORMATION
  Report Type: Spontaneous
  Country: CN (occurrence: CN)
  Receive Date: 20250326
  Receipt Date: 20250608
  Transmission Date: 20250717
  Serious: Yes (Other)
  Sender: COHERUS
  Company Number: CN-SHANGHAI JUNSHI BIOSCIENCES CO., LTD.-CN2025013450

PATIENT

DRUGS (12)
  1. TORIPALIMAB [Suspect]
     Active Substance: TORIPALIMAB
     Indication: Metastases to lymph nodes
     Dates: start: 20240806, end: 20240806
  2. TORIPALIMAB [Suspect]
     Active Substance: TORIPALIMAB
     Dates: start: 20240828, end: 20240828
  3. TORIPALIMAB [Suspect]
     Active Substance: TORIPALIMAB
     Dates: start: 20240919, end: 20240919
  4. TORIPALIMAB [Suspect]
     Active Substance: TORIPALIMAB
     Dates: start: 20241127
  5. PACLITAXEL [Concomitant]
     Active Substance: PACLITAXEL
     Indication: Metastases to lymph nodes
     Dates: start: 20240806, end: 20240806
  6. PACLITAXEL [Concomitant]
     Active Substance: PACLITAXEL
     Dates: start: 20240828, end: 20240828
  7. PACLITAXEL [Concomitant]
     Active Substance: PACLITAXEL
     Dates: start: 20240919, end: 20240919
  8. PACLITAXEL [Concomitant]
     Active Substance: PACLITAXEL
     Dates: start: 20241127
  9. CARBOPLATIN [Concomitant]
     Active Substance: CARBOPLATIN
     Indication: Metastases to lymph nodes
     Dates: start: 20240806, end: 20240806
  10. CARBOPLATIN [Concomitant]
     Active Substance: CARBOPLATIN
     Dates: start: 20240828, end: 20240828
  11. CARBOPLATIN [Concomitant]
     Active Substance: CARBOPLATIN
     Dates: start: 20240919, end: 20240919
  12. CARBOPLATIN [Concomitant]
     Active Substance: CARBOPLATIN
     Dates: start: 20241127

REACTIONS (5)
  - Myelosuppression [Unknown]
  - Hypoaesthesia [Unknown]
  - Hypoaesthesia [Unknown]
  - Asthenia [Unknown]
  - Off label use [Unknown]

NARRATIVE: CASE EVENT DATE: 20240903
